FAERS Safety Report 6388957-3 (Version None)
Quarter: 2009Q4

REPORT INFORMATION
  Report Type: 
  Country: None (occurrence: None)
  Receive Date: 20091001
  Receipt Date: 20090922
  Transmission Date: 20100525
  Serious: Yes (Death)
  Sender: FDA-Public Use
  Company Number: ADR28902009

PATIENT
  Age: 40 Year
  Sex: Male

DRUGS (4)
  1. RAMIPRIL [Suspect]
     Indication: CHEST PAIN
     Dates: start: 20060101
  2. APROVEL (75 MG) [Concomitant]
  3. PERINDOPRIL (UNKNOWN) [Concomitant]
  4. LISINOPRIL [Concomitant]

REACTIONS (5)
  - ACUTE CORONARY SYNDROME [None]
  - ARTERITIS CORONARY [None]
  - HYPERSENSITIVITY [None]
  - INCORRECT DOSE ADMINISTERED [None]
  - LEUKOCYTOSIS [None]
